FAERS Safety Report 8928755 (Version 2)
Quarter: 2013Q1

REPORT INFORMATION
  Report Type: Report from Study
  Country: BR (occurrence: BR)
  Receive Date: 20121128
  Receipt Date: 20130329
  Transmission Date: 20140127
  Serious: Yes (Hospitalization)
  Sender: FDA-Public Use
  Company Number: BR-US-EMD SERONO, INC.-7178056

PATIENT
  Sex: Female

DRUGS (2)
  1. REBIF [Suspect]
     Indication: PRODUCT USED FOR UNKNOWN INDICATION
     Dates: start: 20120928, end: 2012
  2. REBIF [Suspect]
     Dates: start: 2012

REACTIONS (2)
  - Muscular weakness [Recovered/Resolved]
  - Gait disturbance [Recovered/Resolved]
